FAERS Safety Report 9413221 (Version 1)
Quarter: 2013Q3

REPORT INFORMATION
  Report Type: Spontaneous
  Country: US (occurrence: US)
  Receive Date: 20130722
  Receipt Date: 20130722
  Transmission Date: 20140515
  Serious: Yes (Hospitalization)
  Sender: FDA-Public Use
  Company Number: US-NOVEN-13US007316

PATIENT
  Age: 46 Year
  Sex: Female

DRUGS (1)
  1. LITHIUM CARBONATE [Suspect]
     Indication: BIPOLAR DISORDER
     Dosage: 600 MG, QD
     Route: 048

REACTIONS (3)
  - Thyrotoxic crisis [Recovered/Resolved]
  - Mania [Recovered/Resolved]
  - Toxicity to various agents [Recovered/Resolved]
